FAERS Safety Report 25103083 (Version 1)
Quarter: 2025Q1

REPORT INFORMATION
  Report Type: Spontaneous
  Country: US (occurrence: US)
  Receive Date: 20250321
  Receipt Date: 20250321
  Transmission Date: 20250409
  Serious: Yes (Other)
  Sender: NOVO NORDISK
  Company Number: US-NOVOPROD-1389598

PATIENT
  Age: 82 Year
  Sex: Female

DRUGS (1)
  1. SEMAGLUTIDE [Suspect]
     Active Substance: SEMAGLUTIDE
     Indication: Product used for unknown indication
     Dates: start: 20240509, end: 202411

REACTIONS (2)
  - Breast cancer [Not Recovered/Not Resolved]
  - Suspected counterfeit product [Recovered/Resolved]

NARRATIVE: CASE EVENT DATE: 20240509
